FAERS Safety Report 4312047-4 (Version None)
Quarter: 2004Q1

REPORT INFORMATION
  Report Type: 
  Country: None (occurrence: None)
  Receive Date: 20040303
  Receipt Date: 20040220
  Transmission Date: 20041129
  Serious: Yes (Hospitalization)
  Sender: FDA-Public Use
  Company Number: 2004198089DE

PATIENT
  Age: 80 Year
  Sex: Female
  Weight: 84 kg

DRUGS (1)
  1. BEXTRA [Suspect]
     Indication: OSTEOARTHRITIS
     Dosage: 20 MG, QD, ORAL
     Route: 048
     Dates: start: 20031103, end: 20031103

REACTIONS (2)
  - DERMATITIS ALLERGIC [None]
  - ERYTHEMA MULTIFORME [None]
